FAERS Safety Report 9982572 (Version 1)
Quarter: 2014Q1

REPORT INFORMATION
  Report Type: Spontaneous
  Country: US (occurrence: US)
  Receive Date: 20140307
  Receipt Date: 20140307
  Transmission Date: 20141002
  Serious: Yes (Other)
  Sender: FDA-Public Use
  Company Number: US-ASTRAZENECA-2014SE14626

PATIENT
  Age: 58 Year
  Sex: Male

DRUGS (13)
  1. LISINOPRIL [Suspect]
     Route: 048
  2. METOPROLOL SUCCINATE [Suspect]
     Route: 048
  3. BRILINTA [Suspect]
     Indication: ACUTE MYOCARDIAL INFARCTION
     Route: 048
  4. ALBUTEROL DUONEB [Concomitant]
     Dosage: UNKNOWN
  5. NORVASC [Concomitant]
  6. BABY ASPIRIN [Concomitant]
     Dosage: UNKNOWN
  7. ADVAIR [Concomitant]
     Dosage: UNKNOWN
  8. FOLIC ACID [Concomitant]
     Dosage: UNKNOWN
  9. LIPITOR [Concomitant]
  10. IMDUR [Concomitant]
  11. PROTONIX [Concomitant]
  12. BENECOL [Concomitant]
     Dosage: 4025 UNK
  13. SULFASALOZINE [Concomitant]

REACTIONS (1)
  - Thrombosis in device [Unknown]
